FAERS Safety Report 12948356 (Version 3)
Quarter: 2016Q4

REPORT INFORMATION
  Report Type: Spontaneous
  Country: JP (occurrence: JP)
  Receive Date: 20161116
  Receipt Date: 20161214
  Transmission Date: 20170207
  Serious: Yes (Other)
  Sender: FDA-Public Use
  Company Number: JP-EMD SERONO-8117786

PATIENT

DRUGS (2)
  1. SAIZEN [Suspect]
     Active Substance: SOMATROPIN
     Indication: HYPOPITUITARISM
     Dosage: 10DAYS
     Route: 064
     Dates: start: 201411
  2. HMG                                /01277601/ [Concomitant]
     Indication: HYPOPITUITARISM
     Dosage: 10DAYS
     Route: 064
     Dates: start: 201411

REACTIONS (2)
  - Exposure during pregnancy [Unknown]
  - Foetal chromosome abnormality [Unknown]

NARRATIVE: CASE EVENT DATE: 201412
